FAERS Safety Report 25917284 (Version 2)
Quarter: 2025Q4

REPORT INFORMATION
  Report Type: Report from Study
  Country: JP (occurrence: JP)
  Receive Date: 20251014
  Receipt Date: 20251106
  Transmission Date: 20260118
  Serious: Yes (Other)
  Sender: SANOFI AVENTIS
  Company Number: JP-SAKK-2025SA131239AA

PATIENT
  Age: 38 Year
  Sex: Male

DRUGS (14)
  1. AVALGLUCOSIDASE ALFA [Suspect]
     Active Substance: AVALGLUCOSIDASE ALFA
     Indication: Glycogen storage disease type II
     Dosage: 700 MG, QOW
     Route: 041
     Dates: start: 20240403, end: 20241225
  2. AVALGLUCOSIDASE ALFA [Suspect]
     Active Substance: AVALGLUCOSIDASE ALFA
     Dosage: 700 MG, 1X
     Route: 041
     Dates: start: 20220420, end: 20220420
  3. AVALGLUCOSIDASE ALFA [Suspect]
     Active Substance: AVALGLUCOSIDASE ALFA
     Dosage: 700 MG, 1X
     Route: 041
     Dates: start: 20220502, end: 20220502
  4. AVALGLUCOSIDASE ALFA [Suspect]
     Active Substance: AVALGLUCOSIDASE ALFA
     Dosage: 700 MG, QOW
     Route: 041
     Dates: start: 20220518, end: 20230419
  5. AVALGLUCOSIDASE ALFA [Suspect]
     Active Substance: AVALGLUCOSIDASE ALFA
     Dosage: 700 MG, 1X
     Route: 041
     Dates: start: 20230502, end: 20230502
  6. AVALGLUCOSIDASE ALFA [Suspect]
     Active Substance: AVALGLUCOSIDASE ALFA
     Dosage: 700 MG, QOW
     Route: 041
     Dates: start: 20230517, end: 20240306
  7. AVALGLUCOSIDASE ALFA [Suspect]
     Active Substance: AVALGLUCOSIDASE ALFA
     Dosage: 700 MG, 1X
     Route: 041
     Dates: start: 20240322, end: 20240322
  8. AVALGLUCOSIDASE ALFA [Suspect]
     Active Substance: AVALGLUCOSIDASE ALFA
     Dosage: 700 MG, QOW
     Route: 041
     Dates: start: 20250115, end: 20250409
  9. CEFDITOREN PIVOXIL [Suspect]
     Active Substance: CEFDITOREN PIVOXIL
     Indication: Bronchitis
     Dosage: 3 TABLETS DAILY IN 3 DIVIDED DOSES AFTER EACH MEAL
     Route: 048
     Dates: start: 20240612, end: 20240616
  10. UBIDECARENONE [Concomitant]
     Active Substance: UBIDECARENONE
     Indication: Glycogen storage disease type II
     Dosage: 30 MG, QD
     Route: 065
  11. ESCHERICHIA COLI [Concomitant]
     Active Substance: ESCHERICHIA COLI
     Indication: Product used for unknown indication
     Dosage: UNK
     Route: 065
  12. TAURINE [Concomitant]
     Active Substance: TAURINE
     Indication: Glycogen storage disease type II
     Dosage: 3.06 G, QD
     Route: 065
  13. MIYA-BM [Concomitant]
     Active Substance: CLOSTRIDIUM BUTYRICUM SPORES STRAIN M-55
     Indication: Product used for unknown indication
     Dosage: UNK
     Route: 065
     Dates: start: 20231227
  14. AMITRIPTYLINE HYDROCHLORIDE [Concomitant]
     Active Substance: AMITRIPTYLINE HYDROCHLORIDE
     Indication: Product used for unknown indication
     Dosage: UNK
     Route: 065

REACTIONS (2)
  - Clostridium difficile colitis [Recovered/Resolved]
  - Bronchitis [Recovered/Resolved]

NARRATIVE: CASE EVENT DATE: 20240612
